FAERS Safety Report 24094981 (Version 1)
Quarter: 2024Q3

REPORT INFORMATION
  Report Type: Report from Study
  Country: IT (occurrence: None)
  Receive Date: 20240716
  Receipt Date: 20240716
  Transmission Date: 20241017
  Serious: Yes (Other)
  Sender: ASTRAZENECA
  Company Number: 2023A243879

PATIENT

DRUGS (1)
  1. OLAPARIB [Suspect]
     Active Substance: OLAPARIB
     Indication: HER2 negative breast cancer
     Dosage: 150 MG OR 100 MG TABLETS. 600 MG DAILY
     Route: 048

REACTIONS (6)
  - Skin toxicity [Unknown]
  - Rash pruritic [Unknown]
  - Rash [Unknown]
  - Erythema [Unknown]
  - Vomiting [Unknown]
  - Dizziness [Unknown]
